FAERS Safety Report 12660413 (Version 1)
Quarter: 2016Q3

REPORT INFORMATION
  Report Type: Spontaneous
  Country: DE (occurrence: DE)
  Receive Date: 20160817
  Receipt Date: 20160817
  Transmission Date: 20161109
  Serious: Yes (Hospitalization, Other)
  Sender: FDA-Public Use
  Company Number: DE-APOTEX-2016AP010491

PATIENT
  Age: 58 Year
  Sex: Male

DRUGS (4)
  1. CLOPIDOGREL APOTEX [Suspect]
     Active Substance: CLOPIDOGREL BISULFATE
     Indication: THROMBOLYSIS
     Dosage: 150 MG, UNKNOWN
     Route: 048
  2. ACTILYSE [Suspect]
     Active Substance: ALTEPLASE
     Indication: THROMBOLYSIS
     Dosage: 100 MG, UNKNOWN
     Route: 042
  3. HEPARIN [Suspect]
     Active Substance: HEPARIN SODIUM
     Indication: THROMBOLYSIS
     Dosage: 5000 IU, UNKNOWN
     Route: 042
  4. ASPIRIN                            /00002701/ [Suspect]
     Active Substance: ASPIRIN
     Indication: THROMBOLYSIS
     Dosage: 500 MG, UNKNOWN
     Route: 042

REACTIONS (3)
  - Intracranial tumour haemorrhage [Recovering/Resolving]
  - Haematoma [Recovering/Resolving]
  - Hemiparesis [Recovering/Resolving]
